FAERS Safety Report 9825370 (Version 2)
Quarter: 2014Q1

REPORT INFORMATION
  Report Type: Spontaneous
  Country: US (occurrence: US)
  Receive Date: 20140117
  Receipt Date: 20140307
  Transmission Date: 20141002
  Serious: Yes (Other)
  Sender: FDA-Public Use
  Company Number: US-PFIZER INC-2014013765

PATIENT
  Age: 62 Year
  Sex: Female
  Weight: 65.8 kg

DRUGS (4)
  1. XELJANZ [Suspect]
     Indication: RHEUMATOID ARTHRITIS
     Dosage: 5 MG, 2X/DAY
     Route: 048
     Dates: start: 201309, end: 20140113
  2. PREDNISONE [Concomitant]
     Indication: RHEUMATOID ARTHRITIS
     Dosage: 10 MG, DAILY (STRENGTH 5MG)
     Dates: end: 20140113
  3. METHOTREXATE [Concomitant]
     Indication: RHEUMATOID ARTHRITIS
     Dosage: 20 MG, WEEKLY (STRENGTH 2.5MG)
     Dates: end: 20140113
  4. FOLIC ACID [Concomitant]
     Indication: RHEUMATOID ARTHRITIS
     Dosage: 1 MG, DAILY
     Dates: end: 20140113

REACTIONS (11)
  - Fracture [Unknown]
  - Aphonia [Unknown]
  - Cough [Unknown]
  - Nasal congestion [Unknown]
  - Chills [Unknown]
  - Asthenia [Unknown]
  - Viral infection [Unknown]
  - Dysphonia [Unknown]
  - Musculoskeletal chest pain [Unknown]
  - Osteoporosis [Unknown]
  - Bone pain [Unknown]
